FAERS Safety Report 7262344-8 (Version None)
Quarter: 2011Q1

REPORT INFORMATION
  Report Type: 
  Country: None (occurrence: None)
  Receive Date: 20110130
  Receipt Date: 20101115
  Transmission Date: 20110831
  Serious: No
  Sender: FDA-Public Use
  Company Number: US-ABBOTT-10P-163-0685819-00

PATIENT
  Sex: Female
  Weight: 72.64 kg

DRUGS (5)
  1. NORCO [Concomitant]
     Indication: PAIN
  2. VALIUM [Concomitant]
     Indication: ANXIETY
  3. EFFEXOR XR [Concomitant]
     Indication: DEPRESSION
  4. HUMIRA [Suspect]
     Indication: RHEUMATOID ARTHRITIS
     Dates: start: 20100801
  5. HYDROCHLOROTHIAZIDE [Concomitant]
     Indication: HYPERTENSION

REACTIONS (16)
  - SKIN HAEMORRHAGE [None]
  - ABASIA [None]
  - PAIN [None]
  - ARTHRALGIA [None]
  - EAR INFECTION [None]
  - MIDDLE EAR EFFUSION [None]
  - FUNGAL INFECTION [None]
  - WOUND DRAINAGE [None]
  - VERTIGO [None]
  - PRURITUS [None]
  - FALL [None]
  - ACNE [None]
  - ERYTHEMA [None]
  - CONFUSIONAL STATE [None]
  - LOSS OF CONSCIOUSNESS [None]
  - RASH [None]
